FAERS Safety Report 9221634 (Version 2)
Quarter: 2013Q2

REPORT INFORMATION
  Report Type: Spontaneous
  Country: SA (occurrence: SA)
  Receive Date: 20130410
  Receipt Date: 20130411
  Transmission Date: 20140414
  Serious: Yes (Disabling)
  Sender: FDA-Public Use
  Company Number: SA-JNJFOC-20130401438

PATIENT
  Age: 51 Year
  Sex: Female

DRUGS (1)
  1. TOPAMAX [Suspect]
     Indication: MIGRAINE PROPHYLAXIS
     Route: 048
     Dates: start: 2011, end: 201303

REACTIONS (1)
  - Deafness unilateral [Recovering/Resolving]
